FAERS Safety Report 4823071-7 (Version None)
Quarter: 2005Q4

REPORT INFORMATION
  Report Type: 
  Country: None (occurrence: None)
  Receive Date: 20051108
  Receipt Date: 20050803
  Transmission Date: 20060501
  Serious: Yes (Hospitalization)
  Sender: FDA-Public Use
  Company Number: US-MERCK-0508USA01150

PATIENT
  Age: 74 Year
  Sex: Male
  Weight: 100 kg

DRUGS (9)
  1. VIOXX [Suspect]
     Indication: MYALGIA
     Route: 048
     Dates: start: 20000113, end: 20031120
  2. VIOXX [Suspect]
     Route: 065
     Dates: start: 20000718, end: 20000724
  3. VIOXX [Suspect]
     Indication: OSTEOARTHRITIS
     Route: 048
     Dates: start: 20000113, end: 20031120
  4. VIOXX [Suspect]
     Route: 065
     Dates: start: 20000718, end: 20000724
  5. ASPIRIN [Concomitant]
     Route: 065
     Dates: start: 19950101
  6. ZOCOR [Concomitant]
     Route: 065
  7. LISINOPRIL [Concomitant]
     Route: 065
     Dates: start: 19991001, end: 20041101
  8. FLONASE [Concomitant]
     Route: 065
  9. HUMIBID [Concomitant]
     Route: 065

REACTIONS (14)
  - ABDOMINAL DISTENSION [None]
  - ACUTE CORONARY SYNDROME [None]
  - ARTHROPATHY [None]
  - DEPRESSION [None]
  - DIABETES MELLITUS [None]
  - FLATULENCE [None]
  - MICTURITION URGENCY [None]
  - MYOCARDIAL INFARCTION [None]
  - NEPHROLITHIASIS [None]
  - POSTOPERATIVE INFECTION [None]
  - RENAL CYST [None]
  - SHOULDER PAIN [None]
  - SKIN DISORDER [None]
  - SLEEP APNOEA SYNDROME [None]
